FAERS Safety Report 20502169 (Version 1)
Quarter: 2022Q1

REPORT INFORMATION
  Report Type: Spontaneous
  Country: US (occurrence: None)
  Receive Date: 20220219
  Receipt Date: 20220219
  Transmission Date: 20220423
  Serious: Yes (Life-Threatening, Hospitalization, Other)
  Sender: FDA-Public Use
  Company Number: None

PATIENT
  Age: 29 Year
  Sex: Male

DRUGS (3)
  1. CLOZAPINE [Suspect]
     Active Substance: CLOZAPINE
     Dosage: FREQUENCY : DAILY;?
     Route: 048
  2. DIVALPROEX SODIUM ER [Suspect]
     Active Substance: DIVALPROEX SODIUM
  3. GABAPENTIN [Suspect]
     Active Substance: GABAPENTIN

REACTIONS (11)
  - Renal disorder [None]
  - Rhabdomyolysis [None]
  - Pneumonia aspiration [None]
  - Long QT syndrome [None]
  - Tachycardia [None]
  - Hypertension [None]
  - Heart rate abnormal [None]
  - General physical health deterioration [None]
  - Victim of crime [None]
  - Incorrect dose administered [None]
  - Toxicity to various agents [None]

NARRATIVE: CASE EVENT DATE: 20220126
